FAERS Safety Report 4770898-6 (Version None)
Quarter: 2005Q3

REPORT INFORMATION
  Report Type: 
  Country: None (occurrence: None)
  Receive Date: 20050915
  Receipt Date: 20050407
  Transmission Date: 20060218
  Serious: Yes (Other)
  Sender: FDA-Public Use
  Company Number: JP-ROCHE-401664

PATIENT
  Age: 84 Year
  Sex: Female

DRUGS (15)
  1. ROCEPHIN [Suspect]
     Indication: PNEUMONIA
     Route: 042
     Dates: start: 20050205, end: 20050225
  2. FESIN [Concomitant]
     Route: 042
     Dates: start: 20050205
  3. AMINOFLUID [Concomitant]
     Route: 041
     Dates: start: 20050206, end: 20050225
  4. PRIMPERAN INJ [Concomitant]
     Route: 042
     Dates: start: 20050206, end: 20050225
  5. LASIX [Concomitant]
     Route: 042
     Dates: start: 20050210, end: 20050225
  6. DAIVITAMIX [Concomitant]
     Route: 042
     Dates: start: 20050211, end: 20050225
  7. PANTOL [Concomitant]
     Route: 042
     Dates: start: 20050221, end: 20050315
  8. FRANDOL [Concomitant]
     Route: 048
     Dates: start: 20050205
  9. PROCYLIN [Concomitant]
     Route: 048
     Dates: start: 20050205
  10. NU-LOTAN [Concomitant]
     Route: 048
     Dates: start: 20050205
  11. CYANOCOBALAMIN [Concomitant]
     Route: 048
     Dates: start: 20050205
  12. ALPRAZOLAM [Concomitant]
     Route: 048
     Dates: start: 20050205
  13. GASMOTIN [Concomitant]
     Route: 048
     Dates: start: 20050205
  14. ALDACTONE [Concomitant]
     Route: 048
     Dates: start: 20050205
  15. LOXONIN [Concomitant]
     Route: 048
     Dates: start: 20050205

REACTIONS (1)
  - DRUG ERUPTION [None]
